FAERS Safety Report 7784286-1 (Version None)
Quarter: 2011Q3

REPORT INFORMATION
  Report Type: 
  Country: None (occurrence: None)
  Receive Date: 20110928
  Receipt Date: 20110914
  Transmission Date: 20111222
  Serious: Yes (Hospitalization, Other)
  Sender: FDA-Public Use
  Company Number: PHHO2010FR16017

PATIENT
  Sex: Male
  Weight: 85 kg

DRUGS (9)
  1. NEORAL [Suspect]
     Dosage: 75 MG, BID
     Route: 048
     Dates: start: 20100914
  2. HYPERIUM [Concomitant]
     Indication: HYPERTENSION
     Dosage: 2 MG, UNK
     Route: 048
     Dates: start: 20110107
  3. PREDNISONE [Suspect]
     Dosage: 10 MG, UNK
     Route: 048
     Dates: start: 20100817
  4. PREDNISOLONE [Concomitant]
  5. EUPRESSYL [Concomitant]
     Indication: HYPERTENSION
     Dosage: UNK
     Dates: start: 20110201
  6. ATENOLOL [Concomitant]
     Indication: HYPERTENSION
     Dosage: 100 MG, UNK
     Route: 048
     Dates: start: 20101211
  7. NEORAL [Suspect]
     Indication: RENAL TRANSPLANT
     Dosage: 150 MG, BID
     Route: 048
     Dates: start: 20100813, end: 20100913
  8. MYCOPHENOLIC ACID [Suspect]
     Indication: RENAL TRANSPLANT
     Dosage: 720 MG, BID
     Route: 048
     Dates: start: 20100812, end: 20110425
  9. MYCOPHENOLIC ACID [Suspect]
     Dosage: 350 MG, BID
     Route: 048
     Dates: start: 20110429

REACTIONS (5)
  - RENAL FAILURE ACUTE [None]
  - CYTOMEGALOVIRUS INFECTION [None]
  - PYELONEPHRITIS ACUTE [None]
  - HYDROCELE MALE INFECTED [None]
  - INFECTED LYMPHOCELE [None]
